FAERS Safety Report 18074303 (Version 1)
Quarter: 2020Q3

REPORT INFORMATION
  Report Type: Spontaneous
  Country: BR (occurrence: BR)
  Receive Date: 20200727
  Receipt Date: 20200727
  Transmission Date: 20201103
  Serious: Yes (Other)
  Sender: FDA-Public Use
  Company Number: BR-BIOMARINAP-BR-2020-131363

PATIENT
  Age: 28 Year
  Sex: Male

DRUGS (1)
  1. VIMIZIM [Suspect]
     Active Substance: ELOSULFASE ALFA
     Indication: MUCOPOLYSACCHARIDOSIS IV
     Dosage: UNK
     Route: 042

REACTIONS (6)
  - Restrictive pulmonary disease [Unknown]
  - Spinal cord compression [Unknown]
  - Tricuspid valve incompetence [Unknown]
  - Cervical spinal stenosis [Unknown]
  - Deafness neurosensory [Unknown]
  - Aortic valve incompetence [Unknown]

NARRATIVE: CASE EVENT DATE: 2016
